FAERS Safety Report 7909531-0 (Version None)
Quarter: 2011Q4

REPORT INFORMATION
  Report Type: 
  Country: None (occurrence: None)
  Receive Date: 20111111
  Receipt Date: 20111103
  Transmission Date: 20120403
  Serious: Yes (Other)
  Sender: FDA-Public Use
  Company Number: US-JNJFOC-20111103079

PATIENT
  Age: 49 Year
  Sex: Male
  Weight: 113.4 kg

DRUGS (1)
  1. LISTERINE TOTAL CARE PLUS WHITENING [Suspect]
     Indication: DENTAL DISORDER PROPHYLAXIS
     Dosage: A MOUTHFUL
     Route: 048
     Dates: start: 20111001, end: 20111101

REACTIONS (3)
  - ORAL DISCOMFORT [None]
  - PRODUCT QUALITY ISSUE [None]
  - OROPHARYNGEAL BLISTERING [None]
